FAERS Safety Report 17940109 (Version 1)
Quarter: 2020Q2

REPORT INFORMATION
  Report Type: Spontaneous
  Country: DE (occurrence: DE)
  Receive Date: 20200624
  Receipt Date: 20200624
  Transmission Date: 20200714
  Serious: Yes (Hospitalization)
  Sender: FDA-Public Use
  Company Number: DE-MYLANLABS-2020M1057542

PATIENT
  Age: 63 Year
  Sex: Male

DRUGS (21)
  1. PANTOPRAZOL                        /01263201/ [Concomitant]
     Active Substance: PANTOPRAZOLE
     Dosage: 40 MILLIGRAM, QD, 40 MG, 1-0-0-0
     Route: 048
  2. GABAPENTIN. [Concomitant]
     Active Substance: GABAPENTIN
     Dosage: 100 MILLIGRAM, TID, (100 MG, 1-1-1-0)
     Route: 048
  3. PLASTULEN EISEN [Concomitant]
     Dosage: 55 MG, 1-0-0-0, CAPSULES
     Route: 048
  4. ACETYLSALICYLIC ACID [Concomitant]
     Active Substance: ASPIRIN
     Dosage: 100 MG, 0-1-0-0
     Route: 048
  5. LEVOTHYROXIN [Concomitant]
     Active Substance: LEVOTHYROXINE
     Dosage: 112.5 MILLIGRAM, QD, (112.5 MG, 1-0-0-0)
     Route: 048
  6. CLOPIDOGREL [Concomitant]
     Active Substance: CLOPIDOGREL BISULFATE
     Dosage: 75 MILLIGRAM, QD, 75 MG, 1-0-0-0
     Route: 048
  7. TAPENTADOL [Concomitant]
     Active Substance: TAPENTADOL
     Dosage: 100 MILLIGRAM, BID
     Route: 048
  8. CANDESARTAN. [Concomitant]
     Active Substance: CANDESARTAN
     Dosage: 4 MILLIGRAM, BID, (4 MG, 1-0-1-0)
     Route: 048
  9. INSULIN GLARGINE [Concomitant]
     Active Substance: INSULIN GLARGINE
     Dosage: NK MG, ACCORDING TO THE SCHEME
     Route: 058
  10. XIPAMID [Concomitant]
     Active Substance: XIPAMIDE
     Dosage: 10 MILLIGRAM, QD, (10 MG, 1-0-0-0)
     Route: 048
  11. SIMVASTATIN. [Concomitant]
     Active Substance: SIMVASTATIN
     Dosage: 10 MILLIGRAM, QD, 10 MG, 0-0-1-0
     Route: 048
  12. VITAMIN D                          /00318501/ [Concomitant]
     Active Substance: CHOLECALCIFEROL
     Dosage: 20,000 IU / WEEK, 1-0-0-0
     Route: 048
  13. INSULIN ASPART [Concomitant]
     Active Substance: INSULIN ASPART
     Dosage: NK MG, ACCORDING TO THE SCHEME
     Route: 058
  14. MAGNESIUM AAA [Concomitant]
     Dosage: 500 MILLIGRAM, QD, (500 MG, 1-0-0-0)
     Route: 048
  15. DULOXETINE. [Concomitant]
     Active Substance: DULOXETINE
     Dosage: 30 MILLIGRAM, QD, (30 MG, 1-0-0-0)
     Route: 048
  16. METOPROLOL. [Suspect]
     Active Substance: METOPROLOL
     Indication: PRODUCT USED FOR UNKNOWN INDICATION
     Dosage: 47.5 MILLIGRAM, BID, (47.5 MG, 1-0-1-0, RETARD-TABLETTEN)
     Route: 048
  17. NITROLINGUAL [Concomitant]
     Active Substance: NITROGLYCERIN
     Dosage: UNK, NK MG, BEI BEDARF
     Route: 060
  18. CINEOLE [Concomitant]
     Active Substance: EUCALYPTOL
     Dosage: UNK, (200 MG, BEI BEDARF)
     Route: 048
  19. EZETIMIBA [Concomitant]
     Active Substance: EZETIMIBE
     Dosage: 20 MILLIGRAM, QD, 20 MG, 0-0-1-0
     Route: 048
  20. AMLODIPIN                          /00972401/ [Concomitant]
     Active Substance: AMLODIPINE BESYLATE
     Dosage: 10 MILLIGRAM, QD, 10 MG, 1-0-0-0
     Route: 048
  21. ALLOPURINOL. [Concomitant]
     Active Substance: ALLOPURINOL
     Dosage: 300 MG, 0-0-0.5-0
     Route: 048

REACTIONS (5)
  - Ulcer [Unknown]
  - Impaired healing [Unknown]
  - Localised infection [Unknown]
  - Wound [Unknown]
  - Peripheral arterial occlusive disease [Unknown]
